FAERS Safety Report 5162598-8 (Version None)
Quarter: 2006Q4

REPORT INFORMATION
  Report Type: 
  Country: None (occurrence: None)
  Receive Date: 20061201
  Receipt Date: 20061123
  Transmission Date: 20070319
  Serious: Yes (Hospitalization)
  Sender: FDA-Public Use
  Company Number: GB-ALLERGAN-0607927US

PATIENT
  Age: 50 Year
  Sex: Male
  Weight: 72 kg

DRUGS (5)
  1. DYSPORT [Suspect]
     Indication: MUSCLE SPASTICITY
     Dosage: 350 UNITS, SINGLE
     Route: 030
     Dates: start: 20061005, end: 20061005
  2. DYSPORT [Suspect]
     Dosage: 350 UNITS, SINGLE
     Route: 030
     Dates: start: 20040812, end: 20040812
  3. ASPIRIN [Concomitant]
     Indication: CARDIOVASCULAR EVENT PROPHYLAXIS
     Route: 048
     Dates: start: 20020101
  4. SIMVASTATIN [Concomitant]
     Indication: HYPERCHOLESTEROLAEMIA
     Route: 048
     Dates: start: 20020101
  5. TIZANIDINE HCL [Concomitant]
     Indication: MUSCLE SPASTICITY
     Route: 048
     Dates: start: 20030501

REACTIONS (8)
  - ASPARTATE AMINOTRANSFERASE INCREASED [None]
  - BLOOD ALKALINE PHOSPHATASE INCREASED [None]
  - BLOOD BILIRUBIN INCREASED [None]
  - GAMMA-GLUTAMYLTRANSFERASE INCREASED [None]
  - LIVER FUNCTION TEST ABNORMAL [None]
  - NIGHT SWEATS [None]
  - ORCHITIS [None]
  - PYREXIA [None]
